FAERS Safety Report 9375821 (Version 1)
Quarter: 2013Q2

REPORT INFORMATION
  Report Type: Spontaneous
  Country: US (occurrence: US)
  Receive Date: 20130628
  Receipt Date: 20130628
  Transmission Date: 20140414
  Serious: No
  Sender: FDA-Public Use
  Company Number: US-PFIZER INC-2013192272

PATIENT
  Sex: Male

DRUGS (2)
  1. ADVIL PM [Suspect]
     Indication: INSOMNIA
     Dosage: UNK
  2. ADVIL PM [Suspect]
     Indication: PAIN

REACTIONS (2)
  - Drug effect incomplete [Unknown]
  - Paradoxical drug reaction [Unknown]
